FAERS Safety Report 12639105 (Version 2)
Quarter: 2016Q3

REPORT INFORMATION
  Report Type: Spontaneous
  Country: FR (occurrence: FR)
  Receive Date: 20160809
  Receipt Date: 20160823
  Transmission Date: 20161109
  Serious: Yes (Other)
  Sender: FDA-Public Use
  Company Number: FR-ROCHE-1810042

PATIENT
  Age: 72 Year
  Sex: Female

DRUGS (3)
  1. XOLAIR [Suspect]
     Active Substance: OMALIZUMAB
     Dosage: SECOND INJECTION
     Route: 065
     Dates: start: 20160630
  2. XOLAIR [Suspect]
     Active Substance: OMALIZUMAB
     Indication: ASTHMA
     Dosage: 450 MG, EVERY 15 DAYS
     Route: 065
     Dates: start: 20160616
  3. XOLAIR [Suspect]
     Active Substance: OMALIZUMAB
     Dosage: THIRD INJECTION
     Route: 065
     Dates: start: 20160718

REACTIONS (5)
  - Tachypnoea [Recovered/Resolved]
  - Malaise [Recovered/Resolved]
  - Dyspnoea [Recovered/Resolved]
  - Fatigue [Recovered/Resolved]
  - Sense of oppression [Recovered/Resolved]

NARRATIVE: CASE EVENT DATE: 20160616
